FAERS Safety Report 17014210 (Version 1)
Quarter: 2019Q4

REPORT INFORMATION
  Report Type: Spontaneous
  Country: FR (occurrence: FR)
  Receive Date: 20191111
  Receipt Date: 20191111
  Transmission Date: 20200122
  Serious: Yes (Other)
  Sender: FDA-Public Use
  Company Number: FR-AUROBINDO-AUR-APL-2019-070958

PATIENT
  Age: 62 Year
  Sex: Male

DRUGS (6)
  1. POLARAMINE [Suspect]
     Active Substance: DEXCHLORPHENIRAMINE MALEATE
     Indication: PROPHYLAXIS
     Dosage: 5 MILLIGRAM, TOTAL
     Route: 065
     Dates: start: 20170627, end: 20170627
  2. FOLINIC ACID [Suspect]
     Active Substance: LEUCOVORIN
     Dosage: 780 MILLIGRAM, TOTAL
     Route: 065
     Dates: start: 20170627
  3. OXALIPLATIN. [Suspect]
     Active Substance: OXALIPLATIN
     Indication: PRODUCT USED FOR UNKNOWN INDICATION
     Dosage: UNK
     Route: 065
  4. FOLINIC ACID [Suspect]
     Active Substance: LEUCOVORIN
     Indication: COLON CANCER
     Dosage: 117 MILLIGRAM, TOTAL
     Route: 065
     Dates: start: 20170627
  5. SOLU-MEDROL [Suspect]
     Active Substance: METHYLPREDNISOLONE SODIUM SUCCINATE
     Indication: PROPHYLAXIS
     Dosage: 60 MILLIGRAM, TOTAL
     Route: 065
     Dates: start: 20170627, end: 20170627
  6. ZOPHREN [Suspect]
     Active Substance: ONDANSETRON
     Indication: PROPHYLAXIS
     Dosage: 8 MILLIGRAM, TOTAL
     Route: 065
     Dates: start: 20170627, end: 20170627

REACTIONS (4)
  - Acute coronary syndrome [Recovered/Resolved with Sequelae]
  - Hyperhidrosis [Recovered/Resolved]
  - Vomiting [Recovered/Resolved]
  - Malaise [Recovered/Resolved]

NARRATIVE: CASE EVENT DATE: 20170627
